FAERS Safety Report 9437719 (Version 1)
Quarter: 2013Q3

REPORT INFORMATION
  Report Type: Spontaneous
  Country: JP (occurrence: JP)
  Receive Date: 20130802
  Receipt Date: 20130802
  Transmission Date: 20140515
  Serious: Yes (Other)
  Sender: FDA-Public Use
  Company Number: PHHY2013JP076049

PATIENT
  Age: 71 Year
  Sex: Female

DRUGS (2)
  1. NEORAL [Suspect]
     Indication: INTERSTITIAL LUNG DISEASE
     Dosage: 120 MG, DAILY
     Dates: start: 2010
  2. NEORAL [Suspect]
     Indication: OFF LABEL USE

REACTIONS (3)
  - General physical health deterioration [Unknown]
  - Interstitial lung disease [Unknown]
  - Dysphagia [Not Recovered/Not Resolved]
